FAERS Safety Report 6292771-7 (Version None)
Quarter: 2009Q3

REPORT INFORMATION
  Report Type: 
  Country: None (occurrence: None)
  Receive Date: 20090731
  Receipt Date: 20090720
  Transmission Date: 20100115
  Serious: Yes (Other)
  Sender: FDA-Public Use
  Company Number: B0586397A

PATIENT
  Age: 43 Year
  Sex: Male
  Weight: 87 kg

DRUGS (2)
  1. LAMIVUDINE [Suspect]
     Indication: HEPATITIS B E ANTIGEN POSITIVE
     Dosage: 100MG PER DAY
     Route: 065
  2. ENTECAVIR [Concomitant]
     Route: 065

REACTIONS (4)
  - ALANINE AMINOTRANSFERASE INCREASED [None]
  - DRUG RESISTANCE [None]
  - LIVER DISORDER [None]
  - VIRAL INFECTION [None]
